FAERS Safety Report 5505192-9 (Version None)
Quarter: 2007Q4

REPORT INFORMATION
  Report Type: 
  Country: None (occurrence: None)
  Receive Date: 20071102
  Receipt Date: 20071029
  Transmission Date: 20080405
  Serious: Yes (Other)
  Sender: FDA-Public Use
  Company Number: US-ASTRAZENECA-2007UW25054

PATIENT
  Age: 59 Year
  Sex: Female
  Weight: 54.9 kg

DRUGS (4)
  1. SYMBICORT [Suspect]
     Indication: EMPHYSEMA
     Dosage: 160/4.5 MCG 2 PUFFS BID
     Route: 055
     Dates: start: 20070926, end: 20070929
  2. SYMBICORT [Suspect]
     Dosage: 160/4.5 MCG 2 PUFFS BID
     Route: 055
     Dates: start: 20071002, end: 20071001
  3. SYMBICORT [Suspect]
     Dosage: 160/4.5 MCG 2 PUFFS BID
     Route: 055
     Dates: start: 20071008, end: 20071019
  4. ALBUTEROL [Concomitant]

REACTIONS (5)
  - CHEST DISCOMFORT [None]
  - DYSPHAGIA [None]
  - PERICARDITIS [None]
  - THROAT IRRITATION [None]
  - URTICARIA [None]
